FAERS Safety Report 14762332 (Version 1)
Quarter: 2018Q2

REPORT INFORMATION
  Report Type: Report from Study
  Country: None (occurrence: BR)
  Receive Date: 20180416
  Receipt Date: 20180416
  Transmission Date: 20180711
  Serious: Yes (Other)
  Sender: FDA-Public Use
  Company Number: BR-ABBVIE-18K-020-2318385-00

PATIENT
  Sex: Female

DRUGS (1)
  1. HUMIRA [Suspect]
     Active Substance: ADALIMUMAB
     Indication: PSORIATIC ARTHROPATHY
     Route: 058
     Dates: start: 20150416

REACTIONS (5)
  - Intra-abdominal fluid collection [Unknown]
  - Pyrexia [Unknown]
  - Breast cancer female [Unknown]
  - Speech disorder [Unknown]
  - Asthenia [Unknown]
